FAERS Safety Report 22604771 (Version 1)
Quarter: 2023Q2

REPORT INFORMATION
  Report Type: Spontaneous
  Country: US (occurrence: None)
  Receive Date: 20230614
  Receipt Date: 20230614
  Transmission Date: 20230721
  Serious: No
  Sender: FDA-Public Use
  Company Number: None

PATIENT
  Age: 69 Year
  Sex: Male
  Weight: 94.5 kg

DRUGS (1)
  1. CERAVE DEVELOPED WITH DERMATOLOGISTS PSORIASIS MOISTURIZING [Suspect]
     Active Substance: SALICYLIC ACID
     Indication: Psoriasis
     Dosage: TOPICAL
     Route: 061
     Dates: start: 20230608, end: 20230608

REACTIONS (1)
  - Rash papular [None]

NARRATIVE: CASE EVENT DATE: 20230609
